FAERS Safety Report 4673484-1 (Version None)
Quarter: 2005Q2

REPORT INFORMATION
  Report Type: 
  Country: None (occurrence: None)
  Receive Date: 20050525
  Receipt Date: 20050411
  Transmission Date: 20051028
  Serious: No
  Sender: FDA-Public Use
  Company Number: US-GLAXOSMITHKLINE-A0553616A

PATIENT
  Age: 56 Year
  Sex: Female

DRUGS (12)
  1. EPZICOM [Suspect]
     Indication: HIV INFECTION
     Dosage: 1TAB PER DAY
     Route: 048
     Dates: start: 20050323, end: 20050404
  2. EPIVIR [Concomitant]
  3. VALTREX [Concomitant]
  4. RITONAVIR [Concomitant]
  5. ETHAMBUTOL HCL [Concomitant]
  6. INH [Concomitant]
  7. ATAZANAVIR [Concomitant]
  8. RIFABUTIN [Concomitant]
  9. AMITRIPTYLINE [Concomitant]
  10. MOXIFLOXACIN HCL [Concomitant]
  11. IBUPROFEN [Concomitant]
  12. OLOPATADINE HCL [Concomitant]

REACTIONS (7)
  - ANOREXIA [None]
  - ASTHENIA [None]
  - COUGH [None]
  - FATIGUE [None]
  - HEADACHE [None]
  - PYREXIA [None]
  - RASH [None]
